FAERS Safety Report 24566100 (Version 1)
Quarter: 2024Q4

REPORT INFORMATION
  Report Type: Spontaneous
  Country: SA (occurrence: SA)
  Receive Date: 20241030
  Receipt Date: 20241030
  Transmission Date: 20250115
  Serious: Yes (Hospitalization)
  Sender: STRIDES
  Company Number: None

PATIENT
  Age: 54 Year
  Sex: Male

DRUGS (1)
  1. PREDNISOLONE [Suspect]
     Active Substance: PREDNISOLONE
     Indication: Systemic lupus erythematosus
     Dosage: 2.5 MILLIGRAM
     Route: 048

REACTIONS (6)
  - Granuloma [Recovering/Resolving]
  - Mucocutaneous leishmaniasis [Recovering/Resolving]
  - Disease recurrence [Recovering/Resolving]
  - Pseudomonas infection [Recovering/Resolving]
  - Cellulitis [Recovering/Resolving]
  - Superinfection [Recovering/Resolving]
